FAERS Safety Report 21246381 (Version 8)
Quarter: 2022Q4

REPORT INFORMATION
  Report Type: Report from Study
  Country: US (occurrence: US)
  Receive Date: 20220824
  Receipt Date: 20221201
  Transmission Date: 20230113
  Serious: Yes (Death, Hospitalization, Other)
  Sender: FDA-Public Use
  Company Number: US-NOVARTISTESTPH-NVSC2022US185898

PATIENT
  Age: 60 Year
  Sex: Female
  Weight: 98.866 kg

DRUGS (4)
  1. TREPROSTINIL [Suspect]
     Active Substance: TREPROSTINIL
     Indication: Pulmonary arterial hypertension
     Dosage: 40 NG/KG/ MIN, CONT
     Route: 042
     Dates: start: 20220708
  2. TADALAFIL [Concomitant]
     Active Substance: TADALAFIL
     Indication: Product used for unknown indication
     Dosage: UNK
     Route: 065
  3. WARFARIN [Concomitant]
     Active Substance: WARFARIN
     Indication: Product used for unknown indication
     Dosage: UNK
     Route: 065
  4. ORENITRAM [Concomitant]
     Active Substance: TREPROSTINIL
     Indication: Product used for unknown indication
     Dosage: UNK
     Route: 065

REACTIONS (21)
  - Death [Fatal]
  - Sepsis [Unknown]
  - Shock [Unknown]
  - Hypotension [Unknown]
  - Fatigue [Unknown]
  - Ovarian cancer [Unknown]
  - Ascites [Unknown]
  - Chills [Unknown]
  - Abdominal distension [Unknown]
  - Oedema [Unknown]
  - Scratch [Unknown]
  - Catheter site pruritus [Unknown]
  - Catheter site erosion [Unknown]
  - Catheter site irritation [Unknown]
  - Catheter site pain [Unknown]
  - Infusion site erythema [Recovering/Resolving]
  - Nausea [Unknown]
  - Catheter site swelling [Unknown]
  - Headache [Unknown]
  - Diarrhoea [Unknown]
  - Catheter site rash [Recovering/Resolving]

NARRATIVE: CASE EVENT DATE: 20221018
